FAERS Safety Report 16232524 (Version 2)
Quarter: 2019Q2

REPORT INFORMATION
  Report Type: Spontaneous
  Country: JP (occurrence: JP)
  Receive Date: 20190424
  Receipt Date: 20190424
  Transmission Date: 20190711
  Serious: Yes (Other)
  Sender: FDA-Public Use
  Company Number: JP-SAKK-2019SA110815AA

PATIENT
  Age: 91 Year
  Sex: Female

DRUGS (2)
  1. JANUVIA [Concomitant]
     Active Substance: SITAGLIPTIN PHOSPHATE
     Indication: PRODUCT USED FOR UNKNOWN INDICATION
     Dosage: DAILY DOSE OF 0.5 DF
     Route: 048
     Dates: start: 201802
  2. DAONIL TAB 1.25MG [Suspect]
     Active Substance: GLYBURIDE
     Indication: PRODUCT USED FOR UNKNOWN INDICATION
     Dosage: DAILY DOSE OF 1.25 MG, IN THE MORNING
     Route: 048
     Dates: start: 201802

REACTIONS (3)
  - Diabetes mellitus inadequate control [Unknown]
  - Renal impairment [Unknown]
  - Glomerular filtration rate decreased [Unknown]
